FAERS Safety Report 4597339-6 (Version None)
Quarter: 2005Q1

REPORT INFORMATION
  Report Type: 
  Country: None (occurrence: None)
  Receive Date: 20050228
  Receipt Date: 20050228
  Transmission Date: 20050727
  Serious: Yes (Hospitalization)
  Sender: FDA-Public Use
  Company Number: None

PATIENT
  Sex: Female
  Weight: 56.7 kg

DRUGS (5)
  1. TOPOTECAN [Suspect]
     Indication: SMALL CELL LUNG CANCER EXTENSIVE STAGE
     Dosage: 3 MG/ DAY ORAL
     Route: 048
     Dates: start: 20050122, end: 20050128
  2. CARBOPLATIN [Suspect]
     Indication: SMALL CELL LUNG CANCER EXTENSIVE STAGE
     Dosage: AUC  INTRAVENOUS
     Route: 042
     Dates: start: 20050127, end: 20050127
  3. OXYCODONE HCL [Concomitant]
  4. HYDROCODONE BITARTRATE [Concomitant]
  5. PROMETHAZINE [Concomitant]

REACTIONS (4)
  - DIARRHOEA [None]
  - NAUSEA [None]
  - NEUTROPENIA [None]
  - VOMITING [None]
